FAERS Safety Report 17389782 (Version 1)
Quarter: 2020Q1

REPORT INFORMATION
  Report Type: Spontaneous
  Country: US (occurrence: US)
  Receive Date: 20200207
  Receipt Date: 20200207
  Transmission Date: 20200409
  Serious: Yes (Hospitalization)
  Sender: FDA-Public Use
  Company Number: US-ROCHE-2541722

PATIENT
  Sex: Female

DRUGS (5)
  1. PLECANATIDE [Concomitant]
     Active Substance: PLECANATIDE
  2. COLAZAL [Suspect]
     Active Substance: BALSALAZIDE DISODIUM
     Indication: PRODUCT USED FOR UNKNOWN INDICATION
     Route: 065
  3. BACLOFEN. [Concomitant]
     Active Substance: BACLOFEN
  4. MONTELUKAST [Concomitant]
     Active Substance: MONTELUKAST SODIUM
  5. XOLAIR [Suspect]
     Active Substance: OMALIZUMAB
     Indication: URTICARIAL VASCULITIS
     Route: 065

REACTIONS (3)
  - Intentional product use issue [Unknown]
  - Pulmonary embolism [Unknown]
  - Off label use [Unknown]
